FAERS Safety Report 15240216 (Version 2)
Quarter: 2018Q3

REPORT INFORMATION
  Report Type: Report from Study
  Country: JP (occurrence: JP)
  Receive Date: 20180804
  Receipt Date: 20180824
  Transmission Date: 20181010
  Serious: Yes (Hospitalization, Other)
  Sender: FDA-Public Use
  Company Number: JP-AMGEN-JPNNI2018105274

PATIENT
  Age: 70 Year
  Sex: Female

DRUGS (5)
  1. PRECIPITATED CALCIUM CARBONATE [Concomitant]
     Active Substance: CALCIUM CARBONATE
  2. ETELCALCETIDE [Suspect]
     Active Substance: ETELCALCETIDE
     Indication: HYPERPARATHYROIDISM SECONDARY
     Dosage: 5 MG, 3 TIMES/WK
     Route: 042
     Dates: start: 20170628, end: 20170703
  3. OXAROL [Concomitant]
     Active Substance: MAXACALCITOL
  4. ETELCALCETIDE [Suspect]
     Active Substance: ETELCALCETIDE
     Dosage: 5 MG, 3 TIMES/WK
     Route: 042
     Dates: start: 20170904
  5. FOSRENOL [Concomitant]
     Active Substance: LANTHANUM CARBONATE

REACTIONS (4)
  - Enterocolitis [Recovered/Resolved]
  - Douglas^ abscess [Recovered/Resolved]
  - Hypercalcaemia [Recovered/Resolved]
  - Hypophosphataemia [Recovered/Resolved]

NARRATIVE: CASE EVENT DATE: 20170701
